FAERS Safety Report 12990862 (Version 1)
Quarter: 2016Q4

REPORT INFORMATION
  Report Type: Spontaneous
  Country: US (occurrence: US)
  Receive Date: 20161130
  Receipt Date: 20161130
  Transmission Date: 20170207
  Serious: Yes (Life-Threatening, Hospitalization)
  Sender: FDA-Public Use
  Company Number: None

PATIENT
  Age: 64 Year
  Sex: Male
  Weight: 93.5 kg

DRUGS (1)
  1. SULFAMETHIZOLE/TRIMETHOPRIM [Suspect]
     Active Substance: SULFAMETHOXAZOLE\TRIMETHOPRIM
     Indication: CELLULITIS
     Dosage: 1600/320 MG BID PO
     Route: 048
     Dates: start: 20161116, end: 20161126

REACTIONS (3)
  - Palpitations [None]
  - Hyperkalaemia [None]
  - Electrocardiogram T wave peaked [None]

NARRATIVE: CASE EVENT DATE: 20161129
